FAERS Safety Report 25161284 (Version 3)
Quarter: 2025Q3

REPORT INFORMATION
  Report Type: Report from Study
  Country: EU (occurrence: EU)
  Receive Date: 20250404
  Receipt Date: 20250905
  Transmission Date: 20251021
  Serious: Yes (Death, Hospitalization, Other)
  Sender: MERZ
  Company Number: EU-MERZ PHARMACEUTICALS, LLC-ACO_177091_2025

PATIENT

DRUGS (1)
  1. DALFAMPRIDINE [Suspect]
     Active Substance: DALFAMPRIDINE
     Indication: Multiple sclerosis
     Dosage: 10 MILLIGRAM, BID
     Route: 065
     Dates: start: 20191024, end: 20250228

REACTIONS (4)
  - Pneumonia [Fatal]
  - Sepsis [Fatal]
  - Delirium [Fatal]
  - Coma [Fatal]
